FAERS Safety Report 7964164-5 (Version None)
Quarter: 2011Q4

REPORT INFORMATION
  Report Type: 
  Country: None (occurrence: None)
  Receive Date: 20111208
  Receipt Date: 20111128
  Transmission Date: 20120403
  Serious: Yes (Other)
  Sender: FDA-Public Use
  Company Number: IT-BRISTOL-MYERS SQUIBB COMPANY-16265050

PATIENT
  Age: 87 Year
  Sex: Male

DRUGS (6)
  1. ENALAPRIL MALEATE [Concomitant]
     Route: 048
  2. ESCITALOPRAM [Concomitant]
  3. LANOXIN [Concomitant]
     Indication: CARDIAC FAILURE
     Route: 048
  4. EXELON [Concomitant]
     Indication: DEMENTIA
     Dosage: 1 UNIT
  5. LASIX [Concomitant]
  6. COUMADIN [Suspect]
     Indication: ATRIAL FIBRILLATION
     Dosage: 1DF= 1 UNIT AS NECESSARY
     Route: 048
     Dates: start: 20090101, end: 20110927

REACTIONS (3)
  - BLOOD GLUCOSE INCREASED [None]
  - BLOOD PRESSURE INCREASED [None]
  - EPISTAXIS [None]
